FAERS Safety Report 9526342 (Version 2)
Quarter: 2013Q4

REPORT INFORMATION
  Report Type: Spontaneous
  Country: GB (occurrence: GB)
  Receive Date: 20130916
  Receipt Date: 20131205
  Transmission Date: 20140711
  Serious: Yes (Life-Threatening, Hospitalization)
  Sender: FDA-Public Use
  Company Number: GB-MYLANLABS-2013S1019840

PATIENT
  Age: 41 Year
  Sex: Female
  Weight: 104 kg

DRUGS (5)
  1. AZATHIOPRINE [Suspect]
     Indication: UVEITIS
     Route: 048
     Dates: start: 20130619
  2. ACICLOVIR [Concomitant]
     Indication: HERPES VIRUS INFECTION
  3. ALENDRONATE [Concomitant]
     Indication: PRODUCT USED FOR UNKNOWN INDICATION
  4. PREDNISOLONE [Concomitant]
     Indication: PRODUCT USED FOR UNKNOWN INDICATION
  5. SODIUM VALPROATE [Concomitant]
     Indication: HEADACHE

REACTIONS (3)
  - Pancreatitis acute [Recovered/Resolved]
  - Pulmonary embolism [Unknown]
  - Liver function test abnormal [Not Recovered/Not Resolved]
